FAERS Safety Report 16786325 (Version 2)
Quarter: 2019Q3

REPORT INFORMATION
  Report Type: Report from Study
  Country: IT (occurrence: IT)
  Receive Date: 20190909
  Receipt Date: 20190910
  Transmission Date: 20191005
  Serious: Yes (Other)
  Sender: FDA-Public Use
  Company Number: IT-PFIZER INC-2019386347

PATIENT
  Age: 41 Year
  Sex: Female

DRUGS (1)
  1. BASSADO [Suspect]
     Active Substance: DOXYCYCLINE HYCLATE
     Dosage: 100 MG, 1X/DAY
     Dates: start: 20190522, end: 20190526

REACTIONS (2)
  - Rash erythematous [Recovering/Resolving]
  - Feeling hot [Recovering/Resolving]

NARRATIVE: CASE EVENT DATE: 20190522
